FAERS Safety Report 4728238-4 (Version None)
Quarter: 2005Q3

REPORT INFORMATION
  Report Type: 
  Country: None (occurrence: None)
  Receive Date: 20050727
  Receipt Date: 20050715
  Transmission Date: 20060218
  Serious: Yes (Hospitalization)
  Sender: FDA-Public Use
  Company Number: HQWYE383013JUN05

PATIENT
  Age: 80 Year
  Sex: Female

DRUGS (7)
  1. CORDARONE [Suspect]
     Indication: ATRIAL FIBRILLATION
     Dosage: 200 MG 5X PER 1 WK ORAL
     Route: 048
     Dates: start: 20050117, end: 20050306
  2. CORDARONE [Suspect]
     Indication: ATRIAL FLUTTER
     Dosage: 200 MG 5X PER 1 WK ORAL
     Route: 048
     Dates: start: 20050117, end: 20050306
  3. DICLOFENAC SODIUM [Suspect]
     Indication: ARTHRALGIA
     Dosage: 1 UNIT 2X PER 1 DAY TOPICAL
     Route: 061
     Dates: start: 20050117, end: 20050306
  4. SINTROM [Suspect]
     Indication: PROPHYLAXIS
     Dosage: 1 MG 1X PER 1 DAY ORAL
     Route: 048
     Dates: start: 20050117, end: 20050306
  5. CORVASAL                    (MOLSIDOMINE) [Concomitant]
  6. LORAZEPAM [Concomitant]
  7. APROVEL (IRBESARTAN) [Concomitant]

REACTIONS (5)
  - BLEEDING VARICOSE VEIN [None]
  - DRUG INTERACTION [None]
  - HAEMATOCRIT DECREASED [None]
  - HAEMOGLOBIN DECREASED [None]
  - INTERNATIONAL NORMALISED RATIO INCREASED [None]
